FAERS Safety Report 5599344-X (Version None)
Quarter: 2008Q1

REPORT INFORMATION
  Report Type: 
  Country: None (occurrence: None)
  Receive Date: 20080122
  Receipt Date: 20080110
  Transmission Date: 20080703
  Serious: Yes (Other)
  Sender: FDA-Public Use
  Company Number: GB-PFIZER INC-2007107190

PATIENT
  Age: 34 Year
  Sex: Female

DRUGS (2)
  1. DEPO-PROVERA SUSPENSION/INJ [Suspect]
  2. ALCOHOL [Suspect]
     Route: 048

REACTIONS (3)
  - BLOOD ALKALINE PHOSPHATASE INCREASED [None]
  - GAMMA-GLUTAMYLTRANSFERASE INCREASED [None]
  - MEAN CELL VOLUME INCREASED [None]
